FAERS Safety Report 4707605-9 (Version None)
Quarter: 2005Q3

REPORT INFORMATION
  Report Type: 
  Country: None (occurrence: None)
  Receive Date: 20050705
  Receipt Date: 20050615
  Transmission Date: 20060218
  Serious: Yes (Hospitalization)
  Sender: FDA-Public Use
  Company Number: B0381161A

PATIENT
  Age: 8 Year
  Sex: Male

DRUGS (1)
  1. ALBENZA [Suspect]

REACTIONS (9)
  - BLOOD PRESSURE INCREASED [None]
  - CYANOSIS [None]
  - DISCOMFORT [None]
  - DRUG HYPERSENSITIVITY [None]
  - HEADACHE [None]
  - PYREXIA [None]
  - RESPIRATORY RATE INCREASED [None]
  - TREMOR [None]
  - WHITE BLOOD CELL COUNT INCREASED [None]
